FAERS Safety Report 9580524 (Version 1)
Quarter: 2013Q3

REPORT INFORMATION
  Report Type: Spontaneous
  Country: US (occurrence: None)
  Receive Date: 20130916
  Receipt Date: 20130916
  Transmission Date: 20140515
  Serious: Yes (Other)
  Sender: FDA-Public Use
  Company Number: JPI-P-031562

PATIENT
  Age: 62 Year
  Sex: Female

DRUGS (1)
  1. XYREM [Suspect]
     Indication: CHRONIC FATIGUE SYNDROME
     Route: 048
     Dates: start: 20130423

REACTIONS (6)
  - Hypertension [None]
  - Condition aggravated [None]
  - Chest discomfort [None]
  - Sleep disorder [None]
  - Muscle spasms [None]
  - Headache [None]
